FAERS Safety Report 25261284 (Version 2)
Quarter: 2025Q2

REPORT INFORMATION
  Report Type: Spontaneous
  Country: AT (occurrence: AT)
  Receive Date: 20250501
  Receipt Date: 20250518
  Transmission Date: 20250716
  Serious: Yes (Other)
  Sender: ESPERION THERAPEUTICS
  Company Number: AT-DAIICHI SANKYO EUROPE GMBH-DS-2025-138137-AT

PATIENT
  Sex: Male

DRUGS (2)
  1. BEMPEDOIC ACID [Suspect]
     Active Substance: BEMPEDOIC ACID
     Indication: Hypercholesterolaemia
     Dosage: 180 MILLIGRAM, QD
     Route: 048
  2. EZETIMIBE [Concomitant]
     Active Substance: EZETIMIBE
     Indication: Product used for unknown indication
     Route: 065

REACTIONS (5)
  - Coronary artery occlusion [Unknown]
  - Arteriosclerosis [Unknown]
  - Lipoma [Unknown]
  - Chest pain [Unknown]
  - Contraindicated product prescribed [Unknown]
